FAERS Safety Report 22372938 (Version 2)
Quarter: 2023Q2

REPORT INFORMATION
  Report Type: Spontaneous
  Country: US (occurrence: US)
  Receive Date: 20230526
  Receipt Date: 20230531
  Transmission Date: 20230721
  Serious: Yes (Hospitalization, Other)
  Sender: FDA-Public Use
  Company Number: US-PFIZER INC-PV202300092351

PATIENT
  Age: 4 Year
  Sex: Male

DRUGS (1)
  1. OXBRYTA [Suspect]
     Active Substance: VOXELOTOR
     Indication: Autoimmune hepatitis
     Dosage: 600 MG, 1X/DAY
     Route: 048
     Dates: start: 20221115

REACTIONS (4)
  - Ileus [Unknown]
  - Haemoglobin decreased [Unknown]
  - Pain [Unknown]
  - Off label use [Unknown]

NARRATIVE: CASE EVENT DATE: 20221115
